FAERS Safety Report 24913594 (Version 1)
Quarter: 2025Q1

REPORT INFORMATION
  Report Type: Spontaneous
  Country: DE (occurrence: DE)
  Receive Date: 20250201
  Receipt Date: 20250201
  Transmission Date: 20250408
  Serious: Yes (Hospitalization, Other)
  Sender: AMGEN
  Company Number: DE-AMGEN-DEUSP2025015777

PATIENT
  Age: 31 Year
  Sex: Female

DRUGS (4)
  1. BEVACIZUMAB [Suspect]
     Active Substance: BEVACIZUMAB
     Indication: Ovarian cancer stage III
     Route: 065
  2. BEVACIZUMAB [Suspect]
     Active Substance: BEVACIZUMAB
     Route: 065
  3. CARBOPLATIN\PACLITAXEL [Concomitant]
     Active Substance: CARBOPLATIN\PACLITAXEL
  4. CARBOPLATIN\PACLITAXEL [Concomitant]
     Active Substance: CARBOPLATIN\PACLITAXEL

REACTIONS (10)
  - Haemoperitoneum [Unknown]
  - Uterine rupture [Unknown]
  - Neutrophilia [Unknown]
  - White blood cell count increased [Unknown]
  - Procedural haemorrhage [Unknown]
  - Haemoglobin decreased [Unknown]
  - Maternal exposure before pregnancy [Unknown]
  - Twin pregnancy [Unknown]
  - General physical health deterioration [Unknown]
  - Proteinuria [Unknown]
